FAERS Safety Report 11323095 (Version 7)
Quarter: 2016Q4

REPORT INFORMATION
  Report Type: Report from Study
  Country: HU (occurrence: HU)
  Receive Date: 20150730
  Receipt Date: 20161219
  Transmission Date: 20170206
  Serious: Yes (Death, Hospitalization)
  Sender: FDA-Public Use
  Company Number: HU-ROCHE-1613605

PATIENT
  Age: 65 Year
  Sex: Male
  Weight: 86 kg

DRUGS (48)
  1. PREDNISOLONE. [Concomitant]
     Active Substance: PREDNISOLONE
     Route: 065
     Dates: start: 20140206, end: 20140206
  2. PREDNISOLONE. [Concomitant]
     Active Substance: PREDNISOLONE
     Route: 065
     Dates: start: 20150625, end: 20150625
  3. PANADOL (HUNGARY) [Concomitant]
     Indication: PREMEDICATION
     Route: 065
     Dates: start: 20140109, end: 20140109
  4. PANADOL (HUNGARY) [Concomitant]
     Route: 065
     Dates: start: 20150529, end: 20150529
  5. PANADOL (HUNGARY) [Concomitant]
     Route: 065
     Dates: start: 20150625, end: 20150625
  6. PANADOL (HUNGARY) [Concomitant]
     Route: 065
     Dates: start: 20150430, end: 20150430
  7. SUPRASTIN [Concomitant]
     Active Substance: CHLOROPYRAMINE HYDROCHLORIDE
     Indication: PREMEDICATION
     Route: 065
     Dates: start: 20140109, end: 20140109
  8. SUPRASTIN [Concomitant]
     Active Substance: CHLOROPYRAMINE HYDROCHLORIDE
     Route: 065
     Dates: start: 20140403, end: 20140403
  9. SUPRASTIN [Concomitant]
     Active Substance: CHLOROPYRAMINE HYDROCHLORIDE
     Route: 065
     Dates: start: 20150430, end: 20150430
  10. PREDNISOLONE. [Concomitant]
     Active Substance: PREDNISOLONE
     Route: 065
     Dates: start: 20140505, end: 20140505
  11. PREDNISOLONE. [Concomitant]
     Active Substance: PREDNISOLONE
     Route: 065
     Dates: start: 20150430, end: 20150430
  12. PANADOL (HUNGARY) [Concomitant]
     Route: 065
     Dates: start: 20140326, end: 20140326
  13. PANADOL (HUNGARY) [Concomitant]
     Route: 065
     Dates: start: 20141117, end: 20141117
  14. SUPRASTIN [Concomitant]
     Active Substance: CHLOROPYRAMINE HYDROCHLORIDE
     Route: 065
     Dates: start: 20140724, end: 20140724
  15. RITUXIMAB [Suspect]
     Active Substance: RITUXIMAB
     Indication: B-CELL LYMPHOMA
     Dosage: ONCE
     Route: 042
     Dates: start: 20140109, end: 20140109
  16. PREDNISOLONE. [Concomitant]
     Active Substance: PREDNISOLONE
     Route: 065
     Dates: start: 20140724, end: 20140727
  17. PREDNISOLONE. [Concomitant]
     Active Substance: PREDNISOLONE
     Route: 065
     Dates: start: 20140326, end: 20140326
  18. PANADOL (HUNGARY) [Concomitant]
     Route: 065
     Dates: start: 20140306, end: 20140306
  19. PANADOL (HUNGARY) [Concomitant]
     Route: 065
     Dates: start: 20140918, end: 20140918
  20. SUPRASTIN [Concomitant]
     Active Substance: CHLOROPYRAMINE HYDROCHLORIDE
     Route: 065
     Dates: start: 20140206, end: 20140206
  21. SUPRASTIN [Concomitant]
     Active Substance: CHLOROPYRAMINE HYDROCHLORIDE
     Route: 065
     Dates: start: 20141117, end: 20141117
  22. PANADOL (HUNGARY) [Concomitant]
     Route: 065
     Dates: start: 20150305, end: 20150305
  23. SUPRASTIN [Concomitant]
     Active Substance: CHLOROPYRAMINE HYDROCHLORIDE
     Route: 065
     Dates: start: 20140306, end: 20140306
  24. SUPRASTIN [Concomitant]
     Active Substance: CHLOROPYRAMINE HYDROCHLORIDE
     Route: 065
     Dates: start: 20150108, end: 20150108
  25. RITUXIMAB [Suspect]
     Active Substance: RITUXIMAB
     Indication: B-CELL LYMPHOMA
     Dosage: MOST RECENT DOSE PRIOR TO SAE ON 25/JUN/2015
     Route: 058
     Dates: start: 20140206, end: 20150719
  26. RITUXIMAB [Suspect]
     Active Substance: RITUXIMAB
     Dosage: 6 CYCLES
     Route: 058
     Dates: start: 201407
  27. PREDNISOLONE. [Concomitant]
     Active Substance: PREDNISOLONE
     Route: 065
     Dates: start: 20140403, end: 20140403
  28. PREDNISOLONE. [Concomitant]
     Active Substance: PREDNISOLONE
     Route: 065
     Dates: start: 20150305, end: 20150305
  29. PREDNISOLONE. [Concomitant]
     Active Substance: PREDNISOLONE
     Dosage: 7 CYCLES RECEIVED
     Route: 042
     Dates: start: 20120612, end: 20121108
  30. SUPRASTIN [Concomitant]
     Active Substance: CHLOROPYRAMINE HYDROCHLORIDE
     Route: 065
     Dates: start: 20140505, end: 20140505
  31. SUPRASTIN [Concomitant]
     Active Substance: CHLOROPYRAMINE HYDROCHLORIDE
     Route: 065
     Dates: start: 20140918, end: 20140918
  32. SUPRASTIN [Concomitant]
     Active Substance: CHLOROPYRAMINE HYDROCHLORIDE
     Route: 065
     Dates: start: 20150305, end: 20150305
  33. SUPRASTIN [Concomitant]
     Active Substance: CHLOROPYRAMINE HYDROCHLORIDE
     Route: 065
     Dates: start: 20150625, end: 20150625
  34. PREDNISOLONE. [Concomitant]
     Active Substance: PREDNISOLONE
     Route: 065
     Dates: start: 20150108, end: 20150108
  35. PREDNISOLONE. [Concomitant]
     Active Substance: PREDNISOLONE
     Route: 065
     Dates: start: 20141117, end: 20141117
  36. PANADOL (HUNGARY) [Concomitant]
     Route: 065
     Dates: start: 20140403, end: 20140403
  37. PANADOL (HUNGARY) [Concomitant]
     Route: 065
     Dates: start: 20140724, end: 20140724
  38. PANADOL (HUNGARY) [Concomitant]
     Route: 065
     Dates: start: 20150430, end: 20150430
  39. SUPRASTIN [Concomitant]
     Active Substance: CHLOROPYRAMINE HYDROCHLORIDE
     Route: 065
     Dates: start: 20140326, end: 20140326
  40. BENDAMUSTINE [Suspect]
     Active Substance: BENDAMUSTINE
     Indication: B-CELL LYMPHOMA
     Dosage: 6 CYCLES RECEIVED
     Route: 042
     Dates: start: 201312, end: 201405
  41. PREDNISOLONE. [Concomitant]
     Active Substance: PREDNISOLONE
     Indication: PREMEDICATION
     Route: 065
     Dates: start: 20140109, end: 20140109
  42. PANADOL (HUNGARY) [Concomitant]
     Route: 065
     Dates: start: 20150108, end: 20150108
  43. SUPRASTIN [Concomitant]
     Active Substance: CHLOROPYRAMINE HYDROCHLORIDE
     Route: 065
     Dates: start: 20140529, end: 20140529
  44. PREDNISOLONE. [Concomitant]
     Active Substance: PREDNISOLONE
     Route: 065
     Dates: start: 20140306, end: 20140306
  45. PREDNISOLONE. [Concomitant]
     Active Substance: PREDNISOLONE
     Route: 065
     Dates: start: 20150529, end: 20150529
  46. PREDNISOLONE. [Concomitant]
     Active Substance: PREDNISOLONE
     Route: 065
     Dates: start: 20140918, end: 20140918
  47. PANADOL (HUNGARY) [Concomitant]
     Route: 065
     Dates: start: 20140206, end: 20140206
  48. PANADOL (HUNGARY) [Concomitant]
     Route: 065
     Dates: start: 20140505, end: 20140505

REACTIONS (1)
  - Progressive multifocal leukoencephalopathy [Fatal]

NARRATIVE: CASE EVENT DATE: 20150715
